FAERS Safety Report 5151235-4 (Version None)
Quarter: 2006Q4

REPORT INFORMATION
  Report Type: 
  Country: None (occurrence: None)
  Receive Date: 20061113
  Receipt Date: 20061113
  Transmission Date: 20070319
  Serious: Yes (Hospitalization)
  Sender: FDA-Public Use
  Company Number: None

PATIENT
  Age: 77 Year
  Sex: Male
  Weight: 101.6 kg

DRUGS (2)
  1. NAPROXEN [Suspect]
     Indication: INFLAMMATION
     Dosage: 500MG BID PO
     Route: 048
  2. NAPROXEN [Suspect]
     Indication: PAIN
     Dosage: 500MG BID PO
     Route: 048

REACTIONS (2)
  - HYPERSENSITIVITY [None]
  - HYPONATRAEMIA [None]
